FAERS Safety Report 17083413 (Version 1)
Quarter: 2019Q4

REPORT INFORMATION
  Report Type: Spontaneous
  Country: US (occurrence: US)
  Receive Date: 20191127
  Receipt Date: 20191127
  Transmission Date: 20200122
  Serious: No
  Sender: FDA-Public Use
  Company Number: US-SA-2019SA323125

PATIENT
  Age: 68 Year
  Sex: Male

DRUGS (16)
  1. HYDRALAZINE [Concomitant]
     Active Substance: HYDRALAZINE HYDROCHLORIDE
  2. TRIAMCINOLON [TRIAMCINOLONE] [Concomitant]
  3. ULORIC [Concomitant]
     Active Substance: FEBUXOSTAT
  4. LISINOPRIL. [Concomitant]
     Active Substance: LISINOPRIL
  5. MIRTAZAPINE. [Concomitant]
     Active Substance: MIRTAZAPINE
  6. PREDNISONE. [Concomitant]
     Active Substance: PREDNISONE
  7. COLCHICINE. [Concomitant]
     Active Substance: COLCHICINE
  8. METOPROL XL [Concomitant]
  9. PRALUENT [Suspect]
     Active Substance: ALIROCUMAB
     Indication: TYPE IIA HYPERLIPIDAEMIA
     Dosage: 75 MG
  10. GABAPENTIN. [Concomitant]
     Active Substance: GABAPENTIN
  11. CRESTOR [Concomitant]
     Active Substance: ROSUVASTATIN CALCIUM
  12. TORSEMIDE. [Concomitant]
     Active Substance: TORSEMIDE
  13. WARFARIN [Concomitant]
     Active Substance: WARFARIN
  14. ISOSORB MONO [Concomitant]
     Active Substance: ISOSORBIDE MONONITRATE
  15. ZETIA [Concomitant]
     Active Substance: EZETIMIBE
  16. CLONIDINE. [Concomitant]
     Active Substance: CLONIDINE

REACTIONS (1)
  - Product dose omission [Unknown]
